FAERS Safety Report 15595028 (Version 7)
Quarter: 2018Q4

REPORT INFORMATION
  Report Type: Spontaneous
  Country: FR (occurrence: FR)
  Receive Date: 20181106
  Receipt Date: 20181221
  Transmission Date: 20190205
  Serious: Yes (Other)
  Sender: FDA-Public Use
  Company Number: FR-BEH-2018096419

PATIENT
  Age: 29 Year
  Sex: Female
  Weight: 57 kg

DRUGS (5)
  1. PRIVIGEN [Suspect]
     Active Substance: HUMAN IMMUNOGLOBULIN G
     Dosage: 60 G, TOT
     Route: 042
     Dates: start: 20171201
  2. CORTANCYL [Concomitant]
     Active Substance: PREDNISONE
  3. MYFORTIC [Concomitant]
     Active Substance: MYCOPHENOLATE SODIUM
  4. PRIVIGEN [Suspect]
     Active Substance: HUMAN IMMUNOGLOBULIN G
     Indication: RENAL TRANSPLANT
     Dosage: 60 G, TOT
     Route: 042
     Dates: start: 20171117
  5. ADVAGRAF [Concomitant]
     Active Substance: TACROLIMUS

REACTIONS (3)
  - Anti-GAD antibody positive [Unknown]
  - Diabetes mellitus [Recovered/Resolved]
  - Hyperglycaemia [Recovered/Resolved]

NARRATIVE: CASE EVENT DATE: 20171129
